FAERS Safety Report 7463842-4 (Version None)
Quarter: 2011Q2

REPORT INFORMATION
  Report Type: 
  Country: None (occurrence: None)
  Receive Date: 20110506
  Receipt Date: 20110429
  Transmission Date: 20111010
  Serious: Yes (Other)
  Sender: FDA-Public Use
  Company Number: US-SANOFI-AVENTIS-2010SA070753

PATIENT
  Age: 67 Year
  Sex: Male

DRUGS (3)
  1. NOVOLOG [Concomitant]
     Dosage: DOSE:18 UNIT(S)
  2. METFORMIN [Concomitant]
  3. LANTUS [Suspect]
     Indication: TYPE 2 DIABETES MELLITUS
     Dosage: DOSE:90 UNIT(S)
     Route: 058

REACTIONS (6)
  - EXOSTOSIS [None]
  - INJECTION SITE INDURATION [None]
  - PAIN [None]
  - INJECTION SITE PAIN [None]
  - GALLBLADDER DISORDER [None]
  - NERVE INJURY [None]
